FAERS Safety Report 7810781-2 (Version None)
Quarter: 2011Q4

REPORT INFORMATION
  Report Type: 
  Country: None (occurrence: None)
  Receive Date: 20111006
  Receipt Date: 20110920
  Transmission Date: 20120403
  Serious: Yes (Hospitalization, Other)
  Sender: FDA-Public Use
  Company Number: 2011MA000973

PATIENT
  Sex: Male
  Weight: 77.1115 kg

DRUGS (55)
  1. MYLANTA [Concomitant]
  2. ATENOLOL [Concomitant]
  3. ATIVAN [Concomitant]
  4. BUPROPION HCL [Concomitant]
  5. DYCYCLOMINE [Concomitant]
  6. FERROUS SULFATE TAB [Concomitant]
  7. TRAMADOL HCL [Concomitant]
  8. DIGTROPAN [Concomitant]
  9. NEURONTIN [Concomitant]
  10. XANAX [Concomitant]
  11. CALCIUM CARBONATE [Concomitant]
  12. FLUOCINOLONE ACETONIDE [Concomitant]
  13. LANSOPRAZOLE [Concomitant]
  14. METOPROLOL TARTRATE [Concomitant]
  15. PROSCAR [Concomitant]
  16. RANITIDINE [Concomitant]
  17. FLUOXETINE [Concomitant]
  18. HYDROCORTISONE/PRAMOXINE AEROSOL [Concomitant]
  19. MAGNESIUM HYDROXIDE TAB [Concomitant]
  20. ASPIRIN [Concomitant]
  21. ZANTAC [Concomitant]
  22. FEXOFENADINE [Concomitant]
  23. FINSTERIDE [Concomitant]
  24. FLOMAX [Concomitant]
  25. FIORINAL [Concomitant]
  26. LORATADINE [Concomitant]
  27. MIRTAZAPINE [Concomitant]
  28. OXYMETAZOLINE NASAL SPRAY [Concomitant]
  29. VITAMIN B COMPLEX CAP [Concomitant]
  30. METOCLOPRAMIDE [Suspect]
     Indication: IMPAIRED GASTRIC EMPTYING
     Dosage: 10 MG, QID, PO
     Route: 048
     Dates: start: 20030101, end: 20040701
  31. METOCLOPRAMIDE [Suspect]
     Indication: GASTROOESOPHAGEAL REFLUX DISEASE
     Dosage: 10 MG, QID, PO
     Route: 048
     Dates: start: 20030101, end: 20040701
  32. DEXTROMETHORPHAN/GUAIFENESIN LIQUID [Concomitant]
  33. LOVASTATIN [Concomitant]
  34. METRONIDAZOLE TOPICAL GEL [Concomitant]
  35. PAROXETINE HCL [Concomitant]
  36. RABEPRAZOLE SODIUM [Concomitant]
  37. TRIAMCINOLONE ACETONIDE TOPICAL OINTMENT [Concomitant]
  38. CAPSAICIN TOPICAL CREAM [Concomitant]
  39. CLOPIDOGREL [Concomitant]
  40. DOPERIDONE [Concomitant]
  41. EFFEXOR [Concomitant]
  42. ERYTHROMYCIN [Concomitant]
  43. FIORICET [Concomitant]
  44. HYDROCORTISONE VALERATE CREAM [Concomitant]
  45. KLONOPIN [Concomitant]
  46. LIDOCAINE [Concomitant]
  47. NITROGLYCERIN [Concomitant]
  48. OMEPRAZOLE [Concomitant]
  49. ULTRAM [Concomitant]
  50. HYDROXYZINE [Concomitant]
  51. ISOSORBIDE DINITRATE [Concomitant]
  52. HYTRIN [Concomitant]
  53. LYRICA [Concomitant]
  54. SYNTHROID [Concomitant]
  55. TERAZOSIN HCL [Concomitant]

REACTIONS (106)
  - CERVICAL MYELOPATHY [None]
  - ABDOMINAL DISTENSION [None]
  - WEIGHT DECREASED [None]
  - DYSKINESIA [None]
  - PAIN [None]
  - EYE DISORDER [None]
  - PRURITUS [None]
  - NOCTURIA [None]
  - SENSATION OF FOREIGN BODY [None]
  - SUPRAVENTRICULAR TACHYCARDIA [None]
  - MYOCARDIAL INFARCTION [None]
  - EXTRAPYRAMIDAL DISORDER [None]
  - MEMORY IMPAIRMENT [None]
  - PARKINSONISM [None]
  - DYSPHAGIA [None]
  - REGURGITATION [None]
  - DIARRHOEA [None]
  - PAIN IN JAW [None]
  - FLATULENCE [None]
  - TIC [None]
  - GINGIVAL PAIN [None]
  - STRESS [None]
  - MUSCULOSKELETAL STIFFNESS [None]
  - EPICONDYLITIS [None]
  - OROPHARYNGEAL PAIN [None]
  - OSTEOARTHRITIS [None]
  - THYROID MASS [None]
  - CYST [None]
  - ROAD TRAFFIC ACCIDENT [None]
  - INTERVERTEBRAL DISC PROTRUSION [None]
  - SINUS TACHYCARDIA [None]
  - RESTLESSNESS [None]
  - TREMOR [None]
  - SOMNOLENCE [None]
  - BRADYKINESIA [None]
  - AKINESIA [None]
  - AKATHISIA [None]
  - POLLAKIURIA [None]
  - RADICULOPATHY [None]
  - GOITRE [None]
  - SINUS DISORDER [None]
  - SINUSITIS [None]
  - TOOTH FRACTURE [None]
  - ECONOMIC PROBLEM [None]
  - CONSTIPATION [None]
  - BALANCE DISORDER [None]
  - DYSPNOEA [None]
  - PERIPHERAL COLDNESS [None]
  - TORTICOLLIS [None]
  - ECCHYMOSIS [None]
  - IMPAIRED GASTRIC EMPTYING [None]
  - LYMPHADENOPATHY [None]
  - INTERSTITIAL LUNG DISEASE [None]
  - THYROID NEOPLASM [None]
  - CHEST PAIN [None]
  - FIBROMYALGIA [None]
  - CERVICAL SPINAL STENOSIS [None]
  - BONE LOSS [None]
  - EXTRAOCULAR MUSCLE DISORDER [None]
  - TARDIVE DYSKINESIA [None]
  - DYSPHONIA [None]
  - POOR QUALITY SLEEP [None]
  - BLEPHAROSPASM [None]
  - TRIGGER FINGER [None]
  - ASTHENIA [None]
  - SYNCOPE [None]
  - NAUSEA [None]
  - ATROPHY [None]
  - CERVICAL CORD COMPRESSION [None]
  - CEREBRAL ATROPHY [None]
  - SPINAL OSTEOARTHRITIS [None]
  - PALPITATIONS [None]
  - VOMITING [None]
  - DIZZINESS [None]
  - BACK PAIN [None]
  - CONDITION AGGRAVATED [None]
  - NECK PAIN [None]
  - FEELING ABNORMAL [None]
  - CORONARY ARTERY DISEASE [None]
  - HYPOTENSION [None]
  - GASTROINTESTINAL MOTILITY DISORDER [None]
  - ABDOMINAL DISCOMFORT [None]
  - TOOTH DISORDER [None]
  - EMOTIONAL DISORDER [None]
  - HEADACHE [None]
  - ANXIETY [None]
  - DEPRESSION [None]
  - ODYNOPHAGIA [None]
  - FEELING JITTERY [None]
  - SOMATISATION DISORDER [None]
  - HYPERTONIA [None]
  - SNORING [None]
  - RASH [None]
  - PARAESTHESIA [None]
  - OESOPHAGEAL DISORDER [None]
  - SPINAL COLUMN STENOSIS [None]
  - GASTRIC DISORDER [None]
  - PHARYNGEAL MASS [None]
  - SWELLING [None]
  - HIATUS HERNIA [None]
  - VENTRICULAR EXTRASYSTOLES [None]
  - MALAISE [None]
  - OESOPHAGEAL DILATATION [None]
  - SUPRAVENTRICULAR EXTRASYSTOLES [None]
  - SCIATICA [None]
  - CEREBRAL DISORDER [None]
